FAERS Safety Report 4989016-4 (Version None)
Quarter: 2006Q1

REPORT INFORMATION
  Report Type: 
  Country: None (occurrence: None)
  Receive Date: 20060314
  Receipt Date: 20050805
  Transmission Date: 20060701
  Serious: Yes (Other)
  Sender: FDA-Public Use
  Company Number: 200513009BCC

PATIENT
  Age: 63 Year
  Sex: Female
  Weight: 73.9363 kg

DRUGS (5)
  1. ALEVE (CAPLET) [Suspect]
     Indication: ARTHRITIS
     Dosage: 440 MG, ONCE, ORAL
     Route: 048
     Dates: start: 20050501
  2. ALEVE (CAPLET) [Suspect]
     Indication: HEADACHE
     Dosage: 440 MG, ONCE, ORAL
     Route: 048
     Dates: start: 20050501
  3. ALEVE (CAPLET) [Suspect]
     Indication: ARTHRITIS
     Dosage: 440 MG, ONCE, ORAL
     Route: 048
     Dates: start: 20050722
  4. ALEVE (CAPLET) [Suspect]
     Indication: HEADACHE
     Dosage: 440 MG, ONCE, ORAL
     Route: 048
     Dates: start: 20050722
  5. LEVOTHROID [Concomitant]

REACTIONS (7)
  - DRUG HYPERSENSITIVITY [None]
  - DYSURIA [None]
  - HYPOVENTILATION [None]
  - LOSS OF CONSCIOUSNESS [None]
  - NAUSEA [None]
  - PRURITUS GENERALISED [None]
  - VISION BLURRED [None]
